FAERS Safety Report 18452096 (Version 1)
Quarter: 2020Q4

REPORT INFORMATION
  Report Type: Spontaneous
  Country: US (occurrence: US)
  Receive Date: 20201102
  Receipt Date: 20201102
  Transmission Date: 20210114
  Serious: No
  Sender: FDA-Public Use
  Company Number: US-MICRO LABS LIMITED-ML2020-03128

PATIENT
  Sex: Female

DRUGS (14)
  1. ATORVASTATIN [Suspect]
     Active Substance: ATORVASTATIN
  2. CIPROFLOXACIN. [Concomitant]
     Active Substance: CIPROFLOXACIN
  3. MACROBID [Concomitant]
     Active Substance: NITROFURANTOIN\NITROFURANTOIN MONOHYDRATE
  4. PARVASTATIN [Concomitant]
  5. ZYDUS LOSARTAN [Concomitant]
     Indication: HYPERTENSION
     Route: 048
  6. ALBUTEROL SULFATE. [Concomitant]
     Active Substance: ALBUTEROL SULFATE
  7. PAXIL [Concomitant]
     Active Substance: PAROXETINE HYDROCHLORIDE
  8. PENICILLIN [Concomitant]
     Active Substance: PENICILLIN
  9. CEFUROXIME AXETIL. [Concomitant]
     Active Substance: CEFUROXIME AXETIL
  10. PROPRANOLOL [Concomitant]
     Active Substance: PROPRANOLOL HYDROCHLORIDE
  11. NORVASE [Concomitant]
  12. TYLENOL [Concomitant]
     Active Substance: ACETAMINOPHEN
     Dosage: ONE TABLET 3-4 TIMES DAILY AS NEEDED FOR PAIN
     Dates: start: 20200807
  13. SULFA [Concomitant]
     Active Substance: UNSPECIFIED INGREDIENT
  14. METOPROLOL. [Concomitant]
     Active Substance: METOPROLOL

REACTIONS (2)
  - Arthralgia [Unknown]
  - Myalgia [Unknown]
